FAERS Safety Report 10456565 (Version 1)
Quarter: 2014Q3

REPORT INFORMATION
  Report Type: Spontaneous
  Country: US (occurrence: None)
  Receive Date: 20140915
  Receipt Date: 20140915
  Transmission Date: 20150326
  Serious: Yes (Other)
  Sender: FDA-Public Use
  Company Number: None

PATIENT
  Age: 83 Year
  Sex: Male

DRUGS (1)
  1. EXJADE [Suspect]
     Active Substance: DEFERASIROX
     Indication: ACUTE LEUKAEMIA
     Route: 048
     Dates: start: 20140326

REACTIONS (2)
  - Blister [None]
  - Pruritus [None]

NARRATIVE: CASE EVENT DATE: 20140901
